FAERS Safety Report 12845648 (Version 1)
Quarter: 2016Q4

REPORT INFORMATION
  Report Type: Report from Study
  Country: UY (occurrence: UY)
  Receive Date: 20161013
  Receipt Date: 20161013
  Transmission Date: 20170207
  Serious: Yes (Death, Other)
  Sender: FDA-Public Use
  Company Number: UY-ACTELION-A-US2016-143789

PATIENT
  Age: 68 Year
  Sex: Female

DRUGS (1)
  1. VENTAVIS [Suspect]
     Active Substance: ILOPROST
     Indication: PULMONARY HYPERTENSION
     Dosage: 1DF, 6ID
     Route: 055
     Dates: start: 20160304, end: 20161004

REACTIONS (2)
  - Disease progression [Fatal]
  - Pulmonary hypertension [Fatal]
